FAERS Safety Report 6327240-9 (Version None)
Quarter: 2009Q3

REPORT INFORMATION
  Report Type: 
  Country: None (occurrence: None)
  Receive Date: 20090825
  Receipt Date: 20090814
  Transmission Date: 20100115
  Serious: Yes (Other)
  Sender: FDA-Public Use
  Company Number: US-JNJFOC-20090804971

PATIENT
  Sex: Female
  Weight: 52.16 kg

DRUGS (3)
  1. REMICADE [Suspect]
     Indication: CROHN'S DISEASE
     Route: 042
  2. HUMIRA [Suspect]
     Route: 050
  3. HUMIRA [Suspect]
     Indication: CROHN'S DISEASE
     Route: 050

REACTIONS (8)
  - ANAPHYLACTIC REACTION [None]
  - EAR PAIN [None]
  - LACRIMATION INCREASED [None]
  - MIGRAINE [None]
  - NAUSEA [None]
  - NECK PAIN [None]
  - TOOTHACHE [None]
  - VOMITING [None]
